FAERS Safety Report 16926971 (Version 2)
Quarter: 2019Q4

REPORT INFORMATION
  Report Type: Report from Study
  Country: DE (occurrence: DE)
  Receive Date: 20191016
  Receipt Date: 20191029
  Transmission Date: 20200122
  Serious: Yes (Hospitalization, Other)
  Sender: FDA-Public Use
  Company Number: DE-AMGEN-DEUNI2019170045

PATIENT
  Age: 60 Year
  Sex: Male
  Weight: 86 kg

DRUGS (17)
  1. IRINOTECAN [Suspect]
     Active Substance: IRINOTECAN
     Indication: COLORECTAL CANCER METASTATIC
     Dosage: 365 MILLIGRAM
     Route: 065
     Dates: start: 20190718
  2. IRINOTECAN [Suspect]
     Active Substance: IRINOTECAN
     Dosage: 356 MILLIGRAM
     Route: 065
     Dates: start: 20190808
  3. IBUPROFEN. [Concomitant]
     Active Substance: IBUPROFEN
     Indication: PAIN
     Dosage: 600 MILLIGRAM, AS NECESSARY
     Route: 048
     Dates: start: 20190506
  4. FLUOROURACIL. [Suspect]
     Active Substance: FLUOROURACIL
     Dosage: 3897 MILLIGRAM
     Route: 042
     Dates: start: 20191002
  5. PALLADON [Concomitant]
     Active Substance: HYDROMORPHONE
     Indication: PAIN
     Dosage: 1.3 MILLIGRAM, AS NECESSARY
     Route: 048
     Dates: start: 20190701
  6. LAXOBERAL [Concomitant]
     Active Substance: SODIUM PICOSULFATE
     Indication: CONSTIPATION
     Dosage: 10 UNK, AS NECESSARY
     Route: 048
     Dates: start: 20190506
  7. IRINOTECAN [Suspect]
     Active Substance: IRINOTECAN
     Dosage: 365 MILLIGRAM
     Route: 065
     Dates: start: 20190822
  8. PANTOPRAZOL [PANTOPRAZOLE] [Concomitant]
     Active Substance: PANTOPRAZOLE
     Indication: GASTRITIS
     Dosage: 40 MILLIGRAM, QD
     Route: 048
     Dates: start: 20190424
  9. FLUOROURACIL. [Suspect]
     Active Substance: FLUOROURACIL
     Indication: COLORECTAL CANCER METASTATIC
     Dosage: 812 MILLIGRAM
     Route: 040
     Dates: start: 20190718
  10. PANITUMUMAB [Suspect]
     Active Substance: PANITUMUMAB
     Indication: COLORECTAL CANCER METASTATIC
     Dosage: 516 MILLIGRAM
     Route: 042
     Dates: start: 20190718
  11. FOLINIC ACID [Suspect]
     Active Substance: LEUCOVORIN
     Indication: COLORECTAL CANCER METASTATIC
     Dosage: 812 MILLIGRAM
     Route: 065
     Dates: start: 20190718
  12. HYDROMORPHON RATIOPHARM [Concomitant]
     Indication: PAIN
     Dosage: 6 MILLIGRAM, BID
     Route: 048
     Dates: start: 20190701
  13. FLUOROURACIL. [Suspect]
     Active Substance: FLUOROURACIL
     Dosage: 4872 MILLIGRAM
     Route: 042
     Dates: start: 20190718
  14. BUSCOPAN [Concomitant]
     Active Substance: BUTYLSCOPOLAMINE BROMIDE
     Indication: ABDOMINAL PAIN
     Dosage: 10 MILLIGRAM, AS NECESSARY
     Route: 048
     Dates: start: 20190506
  15. FOLINIC ACID [Suspect]
     Active Substance: LEUCOVORIN
     Dosage: 650 MILLIGRAM
     Route: 065
     Dates: start: 20191002
  16. IRINOTECAN [Suspect]
     Active Substance: IRINOTECAN
     Dosage: 292 MILLIGRAM
     Route: 065
     Dates: start: 20191002
  17. FLUOROURACIL. [Suspect]
     Active Substance: FLUOROURACIL
     Dosage: 650 MILLIGRAM
     Route: 040
     Dates: start: 20191002

REACTIONS (1)
  - Diabetes mellitus [Recovered/Resolved]

NARRATIVE: CASE EVENT DATE: 20191009
